FAERS Safety Report 15908139 (Version 1)
Quarter: 2019Q1

REPORT INFORMATION
  Report Type: Spontaneous
  Country: US (occurrence: US)
  Receive Date: 20190204
  Receipt Date: 20190204
  Transmission Date: 20190417
  Serious: No
  Sender: FDA-Public Use
  Company Number: US-PRAGMA PHARMACEUTICALS, LLC-2018PRG00218

PATIENT
  Age: 6 Year
  Sex: Male

DRUGS (2)
  1. KEFLEX [Suspect]
     Active Substance: CEPHALEXIN
     Dosage: 500 MG, UNK
  2. KEFLEX [Suspect]
     Active Substance: CEPHALEXIN
     Dosage: 250 MG, UNK

REACTIONS (3)
  - Oesophagitis [Unknown]
  - Dyspepsia [Unknown]
  - Intentional product use issue [Unknown]
